FAERS Safety Report 6572425-X (Version None)
Quarter: 2010Q1

REPORT INFORMATION
  Report Type: 
  Country: None (occurrence: None)
  Receive Date: 20100205
  Receipt Date: 20100126
  Transmission Date: 20100710
  Serious: Yes (Hospitalization)
  Sender: FDA-Public Use
  Company Number: US-JNJCH-2010002929

PATIENT
  Age: 49 Year
  Sex: Male
  Weight: 102.1 kg

DRUGS (1)
  1. ROLAIDS TAB [Suspect]
     Indication: ABDOMINAL DISCOMFORT
     Dosage: TEXT:ONE TABLET EVERY NIGHT
     Route: 048
     Dates: start: 20000101, end: 20101230

REACTIONS (1)
  - HOSPITALISATION [None]
